FAERS Safety Report 10513676 (Version 1)
Quarter: 2014Q4

REPORT INFORMATION
  Report Type: Spontaneous
  Country: SA (occurrence: SA)
  Receive Date: 20141013
  Receipt Date: 20141013
  Transmission Date: 20150528
  Serious: Yes (Other)
  Sender: FDA-Public Use
  Company Number: SA-BAYER-2014-149596

PATIENT
  Sex: Female

DRUGS (1)
  1. CANESTEN VAGINAL TABLET [Suspect]
     Active Substance: CLOTRIMAZOLE
     Dosage: UNK

REACTIONS (2)
  - Anxiety [Unknown]
  - Haemorrhage [Unknown]
